FAERS Safety Report 13703011 (Version 1)
Quarter: 2017Q2

REPORT INFORMATION
  Report Type: Spontaneous
  Country: PL (occurrence: PL)
  Receive Date: 20170629
  Receipt Date: 20170629
  Transmission Date: 20170830
  Serious: Yes (Other)
  Sender: FDA-Public Use
  Company Number: PL-GILEAD-2017-0280400

PATIENT
  Age: 76 Year
  Sex: Male
  Weight: 114 kg

DRUGS (5)
  1. PERINDOPRIL [Concomitant]
     Active Substance: PERINDOPRIL
  2. ALLOPURINOL. [Concomitant]
     Active Substance: ALLOPURINOL
  3. UDCA [Concomitant]
     Active Substance: URSODIOL
  4. HARVONI [Suspect]
     Active Substance: LEDIPASVIR\SOFOSBUVIR
     Indication: CHRONIC HEPATITIS C
     Route: 065
  5. CARVEDILOL. [Concomitant]
     Active Substance: CARVEDILOL

REACTIONS (4)
  - Hepatic failure [Unknown]
  - Ascites [Unknown]
  - Jaundice [Unknown]
  - Dizziness [Unknown]
